FAERS Safety Report 16740785 (Version 2)
Quarter: 2020Q1

REPORT INFORMATION
  Report Type: Spontaneous
  Country: US (occurrence: US)
  Receive Date: 20190826
  Receipt Date: 20200102
  Transmission Date: 20200409
  Serious: No
  Sender: FDA-Public Use
  Company Number: US-009507513-1908USA009414

PATIENT
  Sex: Female

DRUGS (1)
  1. SYLATRON [Suspect]
     Active Substance: PEGINTERFERON ALFA-2B
     Indication: NEOPLASM MALIGNANT
     Dosage: 66 MICROGRAM, WEEKLY, SQ
     Route: 058
     Dates: start: 20190220

REACTIONS (2)
  - Alopecia [Unknown]
  - Weight decreased [Unknown]

NARRATIVE: CASE EVENT DATE: 2019
